FAERS Safety Report 11940736 (Version 1)
Quarter: 2016Q1

REPORT INFORMATION
  Report Type: Spontaneous
  Country: US (occurrence: US)
  Receive Date: 20160122
  Receipt Date: 20160122
  Transmission Date: 20160526
  Serious: No
  Sender: FDA-Public Use
  Company Number: US-GLAXOSMITHKLINE-US2016GSK008474

PATIENT
  Age: 71 Year
  Sex: Female
  Weight: 63.5 kg

DRUGS (15)
  1. OMEPRAZOLE. [Suspect]
     Active Substance: OMEPRAZOLE
     Indication: GASTROOESOPHAGEAL REFLUX DISEASE
     Dosage: 20 MG, QD
     Dates: start: 2006
  2. VITAMIN D3 [Concomitant]
     Active Substance: CHOLECALCIFEROL
     Indication: SUPPLEMENTATION THERAPY
     Dosage: UNK, TID
  3. WELLBUTRIN [Suspect]
     Active Substance: BUPROPION HYDROCHLORIDE
     Indication: PRODUCT USED FOR UNKNOWN INDICATION
  4. EFFEXOR XR EXTENDED-RELEASE [Suspect]
     Active Substance: VENLAFAXINE HYDROCHLORIDE
     Dosage: 150 MG, QD
  5. EFFEXOR XR EXTENDED-RELEASE [Suspect]
     Active Substance: VENLAFAXINE HYDROCHLORIDE
     Dosage: 300 MG, QD
     Dates: start: 201512
  6. CLONIDINE. [Concomitant]
     Active Substance: CLONIDINE
     Indication: INSOMNIA
     Dosage: 0.1 MG, QD
     Dates: start: 201501
  7. ATORVASTAN [Concomitant]
     Indication: BLOOD CHOLESTEROL INCREASED
     Dosage: 40 MG, QD
     Dates: start: 2015
  8. EFFEXOR XR EXTENDED-RELEASE [Suspect]
     Active Substance: VENLAFAXINE HYDROCHLORIDE
     Dosage: 37.5 MG, QD
     Dates: start: 2013
  9. LISINOPRIL. [Concomitant]
     Active Substance: LISINOPRIL
     Indication: HYPERTENSION
     Dosage: 20 MG, QD
  10. IMODIUM [Concomitant]
     Active Substance: LOPERAMIDE HYDROCHLORIDE
     Indication: DIARRHOEA
     Dosage: 2 MG, QD
  11. DICYCLOMINE [Concomitant]
     Active Substance: DICYCLOMINE HYDROCHLORIDE
     Indication: ABDOMINAL PAIN UPPER
     Dosage: 10 MG, PRN
     Dates: start: 20151117
  12. TOPAMAX [Concomitant]
     Active Substance: TOPIRAMATE
     Indication: INSOMNIA
     Dosage: 100 MG, QD
  13. PAMINE [Concomitant]
     Active Substance: METHSCOPOLAMINE BROMIDE
     Indication: PROPHYLAXIS
     Dosage: 2.5 MG, UNK
  14. EFFEXOR XR EXTENDED-RELEASE [Suspect]
     Active Substance: VENLAFAXINE HYDROCHLORIDE
     Indication: DEPRESSION
     Dosage: 75 MG, QD
     Dates: start: 201512
  15. BIOTIN [Concomitant]
     Active Substance: BIOTIN
     Indication: ONYCHOCLASIS
     Dosage: 2 DF, QD
     Dates: start: 201501

REACTIONS (17)
  - Palpitations [Unknown]
  - Flushing [Unknown]
  - Peripheral coldness [Unknown]
  - Depressed mood [Unknown]
  - Hyperhidrosis [Unknown]
  - Asthenia [Unknown]
  - Diarrhoea [Unknown]
  - Dyspepsia [Unknown]
  - Anxiety [Unknown]
  - Flat affect [Unknown]
  - Abdominal pain upper [Unknown]
  - Paraesthesia [Unknown]
  - Nausea [Unknown]
  - Tremor [Unknown]
  - Drug ineffective [Unknown]
  - Retching [Unknown]
  - Hypersomnia [Unknown]

NARRATIVE: CASE EVENT DATE: 20151115
